FAERS Safety Report 14657542 (Version 1)
Quarter: 2018Q1

REPORT INFORMATION
  Report Type: Spontaneous
  Country: US (occurrence: US)
  Receive Date: 20180319
  Receipt Date: 20180319
  Transmission Date: 20180509
  Serious: No
  Sender: FDA-Public Use
  Company Number: US-009507513-1803USA006368

PATIENT
  Sex: Male

DRUGS (3)
  1. JANUVIA [Suspect]
     Active Substance: SITAGLIPTIN PHOSPHATE
  2. INSULIN [Concomitant]
     Active Substance: INSULIN NOS
     Dosage: 8U
  3. GLUCOTROL [Suspect]
     Active Substance: GLIPIZIDE

REACTIONS (4)
  - Glycosylated haemoglobin increased [Unknown]
  - Injection site induration [Unknown]
  - Blood glucose abnormal [Recovering/Resolving]
  - Drug effect incomplete [Unknown]

NARRATIVE: CASE EVENT DATE: 20180309
